FAERS Safety Report 12905783 (Version 1)
Quarter: 2016Q4

REPORT INFORMATION
  Report Type: Report from Study
  Country: JP (occurrence: JP)
  Receive Date: 20161103
  Receipt Date: 20161103
  Transmission Date: 20170207
  Serious: Yes (Other)
  Sender: FDA-Public Use
  Company Number: JP-CIPLA LTD.-2016JP20262

PATIENT

DRUGS (3)
  1. TOPOTECAN [Suspect]
     Active Substance: TOPOTECAN HYDROCHLORIDE
     Indication: SMALL CELL LUNG CANCER
     Dosage: 1 MG/M2, DILUTED IN 100ML OF PHYSIOLOGICAL SALINE OVER 30 MINUTES ON DAYS 1 TO 3
     Route: 042
  2. DEXAMETHASONE. [Concomitant]
     Active Substance: DEXAMETHASONE
     Indication: PREMEDICATION
     Dosage: UNK
     Route: 065
  3. CISPLATIN. [Suspect]
     Active Substance: CISPLATIN
     Indication: SMALL CELL LUNG CANCER
     Dosage: 20 MG/M2, DILUTED IN 300ML OF PHYSIOLOGICAL SALINE OVER 1 HOUR ON DAYS 1 TO 3
     Route: 042

REACTIONS (1)
  - Disease progression [Unknown]
